FAERS Safety Report 19908450 (Version 1)
Quarter: 2021Q4

REPORT INFORMATION
  Report Type: Other
  Country: JP (occurrence: JP)
  Receive Date: 20211002
  Receipt Date: 20211002
  Transmission Date: 20220303
  Serious: Yes (Other)
  Sender: FDA-Public Use
  Company Number: JP-ROCHE-2925850

PATIENT
  Age: 74 Year
  Sex: Female

DRUGS (13)
  1. TOCILIZUMAB [Suspect]
     Active Substance: TOCILIZUMAB
     Indication: Rheumatoid arthritis
     Route: 065
     Dates: start: 201404, end: 201602
  2. PREDNISOLONE [Concomitant]
     Active Substance: PREDNISOLONE
  3. BUCILLAMINE [Concomitant]
     Active Substance: BUCILLAMINE
  4. LOXOPROFEN [Concomitant]
     Active Substance: LOXOPROFEN
  5. METHOTREXATE [Concomitant]
     Active Substance: METHOTREXATE
  6. FOLIC ACID [Concomitant]
     Active Substance: FOLIC ACID
  7. LANSOPRAZOLE [Concomitant]
     Active Substance: LANSOPRAZOLE
  8. REBAMIPIDE [Concomitant]
     Active Substance: REBAMIPIDE
  9. LEVOTHYROXINE SODIUM [Concomitant]
     Active Substance: LEVOTHYROXINE SODIUM
  10. ROSUVASTATIN CALCIUM [Concomitant]
     Active Substance: ROSUVASTATIN CALCIUM
  11. EZETIMIBE [Concomitant]
     Active Substance: EZETIMIBE
  12. FLUCONAZOLE [Concomitant]
     Active Substance: FLUCONAZOLE
  13. TOFACITINIB [Concomitant]
     Active Substance: TOFACITINIB
     Dates: start: 201602

REACTIONS (3)
  - Intestinal ulcer [Recovered/Resolved]
  - Haematochezia [Recovered/Resolved]
  - Abdominal pain [Recovered/Resolved]
